FAERS Safety Report 17559836 (Version 2)
Quarter: 2025Q1

REPORT INFORMATION
  Report Type: Report from Study
  Country: GB (occurrence: GB)
  Receive Date: 20200319
  Receipt Date: 20250326
  Transmission Date: 20250408
  Serious: Yes (Other)
  Sender: AMGEN
  Company Number: GB-AMGEN-GBRSL2020044561

PATIENT
  Age: 52 Year
  Sex: Male

DRUGS (2)
  1. ADALIMUMAB [Suspect]
     Active Substance: ADALIMUMAB
     Indication: Psoriasis
     Dosage: UNK UNK, Q3WK
     Route: 065
  2. ADALIMUMAB [Suspect]
     Active Substance: ADALIMUMAB
     Dosage: 40 MILLIGRAM, Q3WK (ROUGHLY A MONTHLY BASIS)
     Route: 065

REACTIONS (3)
  - Brain neoplasm [Unknown]
  - Product use issue [Unknown]
  - Intentional product use issue [Unknown]
